FAERS Safety Report 15336294 (Version 7)
Quarter: 2019Q3

REPORT INFORMATION
  Report Type: Spontaneous
  Country: US (occurrence: US)
  Receive Date: 20180830
  Receipt Date: 20190912
  Transmission Date: 20191004
  Serious: Yes (Hospitalization)
  Sender: FDA-Public Use
  Company Number: US-ACTELION-A-NJ2018-177673

PATIENT
  Age: 76 Year
  Sex: Female

DRUGS (27)
  1. OPSUMIT [Suspect]
     Active Substance: MACITENTAN
     Indication: PULMONARY ARTERIAL HYPERTENSION
     Dosage: 10 MG, QD
     Route: 048
     Dates: start: 20180720
  2. METOPROL XL [Concomitant]
  3. FERROUS SULFATE. [Concomitant]
     Active Substance: FERROUS SULFATE
  4. CHLORTHALIDON [Concomitant]
  5. FLUTICASONE. [Concomitant]
     Active Substance: FLUTICASONE
  6. SPIRONOLACTONE. [Concomitant]
     Active Substance: SPIRONOLACTONE
  7. PROAIR HFA [Concomitant]
     Active Substance: ALBUTEROL SULFATE
  8. WARFARIN [Concomitant]
     Active Substance: WARFARIN
  9. LOSARTAN POTASSIUM. [Concomitant]
     Active Substance: LOSARTAN POTASSIUM
  10. DOK [Concomitant]
     Active Substance: DOCUSATE SODIUM
  11. TRAMADOL. [Concomitant]
     Active Substance: TRAMADOL
  12. AMLODIPINE [Concomitant]
     Active Substance: AMLODIPINE BESYLATE
  13. ATORVASTATIN [Concomitant]
     Active Substance: ATORVASTATIN
  14. CLOPIDOGREL [Concomitant]
     Active Substance: CLOPIDOGREL BISULFATE
  15. PANTOPRAZOLE [Concomitant]
     Active Substance: PANTOPRAZOLE
  16. ATENOLOL. [Concomitant]
     Active Substance: ATENOLOL
  17. DILTIAZEM. [Concomitant]
     Active Substance: DILTIAZEM
  18. ONDANSETRON [Concomitant]
     Active Substance: ONDANSETRON
  19. BREO ELLIPTA [Concomitant]
     Active Substance: FLUTICASONE FUROATE\VILANTEROL TRIFENATATE
  20. SILDENAFIL. [Suspect]
     Active Substance: SILDENAFIL
     Indication: PULMONARY ARTERIAL HYPERTENSION
     Dosage: 20 MG, TID
     Route: 048
     Dates: start: 20180324
  21. ROPINIROLE. [Concomitant]
     Active Substance: ROPINIROLE
  22. NITROGLYCERIN. [Concomitant]
     Active Substance: NITROGLYCERIN
  23. MECLIZINE [Concomitant]
     Active Substance: MECLIZINE HYDROCHLORIDE
  24. CARTIA XT [Concomitant]
     Active Substance: DILTIAZEM HYDROCHLORIDE
  25. ELIQUIS [Concomitant]
     Active Substance: APIXABAN
  26. FURSEMIDE [Concomitant]
     Active Substance: FUROSEMIDE
  27. POTASSIUM CHLORIDE. [Concomitant]
     Active Substance: POTASSIUM CHLORIDE

REACTIONS (13)
  - Nausea [Not Recovered/Not Resolved]
  - Product distribution issue [Unknown]
  - Blood glucose decreased [Not Recovered/Not Resolved]
  - Weight decreased [Not Recovered/Not Resolved]
  - Dyspnoea [Unknown]
  - Paranasal sinus hypersecretion [Unknown]
  - Product dose omission [Unknown]
  - Diarrhoea [Not Recovered/Not Resolved]
  - Dyspepsia [Not Recovered/Not Resolved]
  - Thrombosis [Not Recovered/Not Resolved]
  - Vomiting [Unknown]
  - Atrial appendage closure [Recovered/Resolved]
  - Transfusion [Not Recovered/Not Resolved]

NARRATIVE: CASE EVENT DATE: 20180829
